FAERS Safety Report 9886200 (Version 1)
Quarter: 2014Q1

REPORT INFORMATION
  Report Type: Spontaneous
  Country: US (occurrence: US)
  Receive Date: 20140210
  Receipt Date: 20140210
  Transmission Date: 20141002
  Serious: No
  Sender: FDA-Public Use
  Company Number: US-ENDO PHARMACEUTICALS INC.-PHEN20130012

PATIENT
  Age: 61 Year
  Sex: Female

DRUGS (2)
  1. PHENTERMINE HCL TABLETS [Suspect]
     Indication: PRODUCT USED FOR UNKNOWN INDICATION
     Route: 048
     Dates: start: 201305, end: 201305
  2. FUROSEMIDE TABLETS [Concomitant]
     Indication: PRODUCT USED FOR UNKNOWN INDICATION
     Dosage: UNKNOWN
     Route: 048
     Dates: end: 201305

REACTIONS (4)
  - Tongue ulceration [Recovering/Resolving]
  - Abdominal pain upper [Recovered/Resolved]
  - Tongue disorder [Recovering/Resolving]
  - Dry mouth [Unknown]
